FAERS Safety Report 26125496 (Version 1)
Quarter: 2025Q4

REPORT INFORMATION
  Report Type: Spontaneous
  Country: GB (occurrence: GB)
  Receive Date: 20251205
  Receipt Date: 20251205
  Transmission Date: 20260117
  Serious: Yes (Hospitalization, Other)
  Sender: RANBAXY
  Company Number: GB-SUN PHARMACEUTICAL INDUSTRIES LTD-2025R1-539641

PATIENT
  Sex: Female
  Weight: 1.6 kg

DRUGS (4)
  1. HYDRALAZINE [Suspect]
     Active Substance: HYDRALAZINE HYDROCHLORIDE
     Indication: Blood pressure systolic
     Dosage: UNK, BOLUSES
     Route: 064
  2. LABETALOL [Suspect]
     Active Substance: LABETALOL
     Indication: Aortic dissection
     Dosage: UNK
     Route: 064
  3. LABETALOL [Suspect]
     Active Substance: LABETALOL
     Indication: Blood pressure measurement
  4. MORPHINE [Suspect]
     Active Substance: MORPHINE
     Indication: Pain
     Dosage: UNK
     Route: 064

REACTIONS (4)
  - Premature baby [Unknown]
  - Low birth weight baby [Unknown]
  - Respiratory distress [Recovering/Resolving]
  - Foetal exposure during pregnancy [Unknown]
